FAERS Safety Report 16928038 (Version 4)
Quarter: 2019Q4

REPORT INFORMATION
  Report Type: Spontaneous
  Country: US (occurrence: US)
  Receive Date: 20191017
  Receipt Date: 20191102
  Transmission Date: 20200122
  Serious: No
  Sender: FDA-Public Use
  Company Number: US-UNITED THERAPEUTICS-UNT-2019-017175

PATIENT
  Age: 40 Year
  Sex: Female
  Weight: 104.99 kg

DRUGS (2)
  1. REMODULIN [Suspect]
     Active Substance: TREPROSTINIL
     Indication: PULMONARY ARTERIAL HYPERTENSION
     Dosage: 0.010 ?G/KG, CONTINUING
     Route: 058
     Dates: start: 20191011
  2. REMODULIN [Suspect]
     Active Substance: TREPROSTINIL
     Indication: PULMONARY ARTERIAL HYPERTENSION
     Dosage: 0.010 ?G/KG, CONTINUING
     Route: 041
     Dates: start: 201910

REACTIONS (9)
  - Headache [Not Recovered/Not Resolved]
  - Pain in jaw [Not Recovered/Not Resolved]
  - Fatigue [Recovered/Resolved]
  - Catheter site pain [Recovered/Resolved]
  - Infusion site erythema [Recovered/Resolved]
  - Nausea [Recovered/Resolved]
  - Infusion site pain [Unknown]
  - Infusion site discolouration [Unknown]
  - Gait disturbance [Not Recovered/Not Resolved]

NARRATIVE: CASE EVENT DATE: 201910
